FAERS Safety Report 8069822 (Version 2)
Quarter: 2013Q2

REPORT INFORMATION
  Report Type: Report from Study
  Country: JP (occurrence: JP)
  Receive Date: 20110804
  Receipt Date: 20130527
  Transmission Date: 20140414
  Serious: No
  Sender: FDA-Public Use
  Company Number: PHHY2011JP66443

PATIENT
  Age: 37 Year
  Sex: Male
  Weight: 109 kg

DRUGS (5)
  1. ICL670A [Suspect]
     Indication: MYELODYSPLASTIC SYNDROME
     Dosage: 1125 MG, DAILY
     Route: 048
     Dates: start: 20100302, end: 20100406
  2. ICL670A [Suspect]
     Dosage: 750 MG, DAILY
     Route: 048
     Dates: start: 20100407, end: 20101214
  3. ICL670A [Suspect]
     Dosage: 500 MG, DAILY
     Route: 048
     Dates: start: 20101215, end: 20110302
  4. NEORAL [Suspect]
     Indication: MYELODYSPLASTIC SYNDROME
     Dosage: 300 MG, DAILY
     Route: 048
     Dates: start: 20070724, end: 20110302
  5. PRIMOBOLAN [Concomitant]
     Indication: MYELODYSPLASTIC SYNDROME
     Dosage: 15 MG, UNK
     Route: 048
     Dates: start: 20070724, end: 20110302

REACTIONS (2)
  - Protein urine present [Recovered/Resolved]
  - Blood creatinine increased [Recovered/Resolved]
